FAERS Safety Report 8415764-X (Version None)
Quarter: 2012Q2

REPORT INFORMATION
  Report Type: 
  Country: None (occurrence: None)
  Receive Date: 20120606
  Receipt Date: 20120530
  Transmission Date: 20120825
  Serious: Yes (Other)
  Sender: FDA-Public Use
  Company Number: US-ASTELLAS-2012US005187

PATIENT
  Sex: Female
  Weight: 77 kg

DRUGS (2)
  1. ERLOTINIB HYDROCHLORIDE [Suspect]
     Dosage: UNK
     Route: 048
     Dates: start: 20120101
  2. ERLOTINIB HYDROCHLORIDE [Suspect]
     Indication: NON-SMALL CELL LUNG CANCER
     Dosage: UNK
     Route: 048
     Dates: start: 20111201, end: 20120101

REACTIONS (4)
  - ALOPECIA [None]
  - BLOOD PRESSURE ABNORMAL [None]
  - PRURITUS [None]
  - RASH [None]
